FAERS Safety Report 8661736 (Version 3)
Quarter: 2014Q2

REPORT INFORMATION
  Report Type: Report from Study
  Country: JP (occurrence: JP)
  Receive Date: 20120712
  Receipt Date: 20140508
  Transmission Date: 20141212
  Serious: Yes (Hospitalization, Other)
  Sender: FDA-Public Use
  Company Number: JP-009507513-1207JPN000183

PATIENT
  Age: 44 Year
  Sex: Male

DRUGS (10)
  1. MIRTAZAPINE [Suspect]
     Indication: DEPRESSION
     Dosage: 1 DF, QD
     Route: 048
     Dates: start: 20110730, end: 20111104
  2. MIRTAZAPINE [Suspect]
     Dosage: 2 DF, QD
     Route: 048
     Dates: start: 20111105, end: 20111116
  3. MIRTAZAPINE [Suspect]
     Dosage: 3 DF, QD
     Route: 048
     Dates: start: 20111117, end: 20120130
  4. LONASEN [Concomitant]
     Indication: DEPRESSION
     Dosage: THE DIVIDED DOSE FREQUENCY IS UNCERTAIN.
     Route: 048
     Dates: start: 20090725, end: 20120130
  5. LENDORMIN [Concomitant]
     Indication: DEPRESSION
     Dosage: THE DIVIDED DOSE FREQUENCY IS UNCERTAIN.
     Route: 048
     Dates: start: 20110305
  6. ROHYPNOL [Concomitant]
     Indication: INSOMNIA
     Dosage: THE DIVIDED DOSE FREQUENCY IS UNCERTAIN.
     Route: 048
     Dates: start: 20111105, end: 20111116
  7. ROHYPNOL [Concomitant]
     Dosage: THE DIVIDED DOSE FREQUENCY IS UNCERTAIN.
     Route: 048
     Dates: start: 20111117, end: 20120130
  8. NORVASC [Concomitant]
     Dosage: DOSAGE IS UNCERTAIN DURING A DAY.
     Route: 048
  9. TENORMIN [Concomitant]
     Dosage: DOSAGE IS UNCERTAIN DURING A DAY.
     Route: 048
  10. FOIPAN [Concomitant]
     Dosage: DOSAGE IS UNCERTAIN DURING A DAY.
     Route: 048

REACTIONS (6)
  - Gait disturbance [Recovered/Resolved]
  - Enterocolitis [Recovered/Resolved]
  - Pancreatitis acute [Recovering/Resolving]
  - Arthritis [Recovering/Resolving]
  - Rhabdomyolysis [Recovered/Resolved]
  - Somnolence [Recovered/Resolved]
